FAERS Safety Report 8016165-9 (Version None)
Quarter: 2011Q4

REPORT INFORMATION
  Report Type: 
  Country: None (occurrence: None)
  Receive Date: 20111230
  Receipt Date: 20111219
  Transmission Date: 20120403
  Serious: Yes (Other)
  Sender: FDA-Public Use
  Company Number: US-MYLANLABS-2011S1026115

PATIENT
  Sex: Male

DRUGS (3)
  1. AMLODIPINE BESYLATE [Suspect]
  2. METFORMIN HCL [Suspect]
  3. SIMVASTATIN [Suspect]

REACTIONS (2)
  - SWELLING [None]
  - PARALYSIS [None]
